FAERS Safety Report 19487636 (Version 4)
Quarter: 2025Q3

REPORT INFORMATION
  Report Type: Report from Study
  Country: US (occurrence: US)
  Receive Date: 20210702
  Receipt Date: 20250710
  Transmission Date: 20251021
  Serious: Yes (Hospitalization, Other)
  Sender: JAZZ
  Company Number: US-GW PHARMA-202106USGW03185

PATIENT

DRUGS (3)
  1. EPIDIOLEX [Suspect]
     Active Substance: CANNABIDIOL
     Indication: Epilepsy
     Dosage: 500 MILLIGRAM, BID 18.22 MG/KG/DAY
     Route: 048
     Dates: start: 2019
  2. EPIDIOLEX [Suspect]
     Active Substance: CANNABIDIOL
     Dosage: 5 MILLILITER, BID
     Route: 048
  3. OMEPRAZOLE [Concomitant]
     Active Substance: OMEPRAZOLE
     Indication: Product used for unknown indication
     Route: 065

REACTIONS (6)
  - Seizure [Unknown]
  - Craniocerebral injury [Unknown]
  - Gastrointestinal sounds abnormal [Unknown]
  - Abdominal pain [Unknown]
  - Confusional state [Unknown]
  - Irritability [Unknown]

NARRATIVE: CASE EVENT DATE: 20210101
